FAERS Safety Report 8154299-9 (Version None)
Quarter: 2012Q1

REPORT INFORMATION
  Report Type: 
  Country: None (occurrence: None)
  Receive Date: 20120221
  Receipt Date: 20120213
  Transmission Date: 20120608
  Serious: Yes (Hospitalization)
  Sender: FDA-Public Use
  Company Number: US-ACTELION-A-US2012-61143

PATIENT

DRUGS (2)
  1. COUMADIN [Concomitant]
  2. TRACLEER [Suspect]
     Indication: PULMONARY HYPERTENSION
     Dosage: UNK MG, UNK
     Route: 048

REACTIONS (3)
  - VOMITING [None]
  - NAUSEA [None]
  - SEPSIS [None]
